FAERS Safety Report 15603299 (Version 1)
Quarter: 2018Q4

REPORT INFORMATION
  Report Type: Spontaneous
  Country: US (occurrence: US)
  Receive Date: 20181109
  Receipt Date: 20181109
  Transmission Date: 20190205
  Serious: Yes (Other)
  Sender: FDA-Public Use
  Company Number: US-BAYER-2017-221154

PATIENT

DRUGS (2)
  1. GADAVIST [Suspect]
     Active Substance: GADOBUTROL
     Dosage: UNK UNK, ONCE
  2. MAGNEVIST [Suspect]
     Active Substance: GADOPENTETATE DIMEGLUMINE
     Dosage: UNK UNK, ONCE

REACTIONS (16)
  - Muscle contractions involuntary [None]
  - Cognitive disorder [None]
  - Pain [None]
  - Anxiety [None]
  - Rash [None]
  - Skin burning sensation [None]
  - Headache [None]
  - Injury [None]
  - Decreased appetite [None]
  - Diarrhoea [None]
  - Muscular weakness [None]
  - Musculoskeletal chest pain [None]
  - Bone pain [None]
  - Gadolinium deposition disease [None]
  - Dyspnoea [None]
  - Emotional distress [None]
